FAERS Safety Report 12160238 (Version 1)
Quarter: 2016Q1

REPORT INFORMATION
  Report Type: Spontaneous
  Country: US (occurrence: US)
  Receive Date: 20160308
  Receipt Date: 20160308
  Transmission Date: 20160526
  Serious: No
  Sender: FDA-Public Use
  Company Number: US-SMITH AND NEPHEW, INC-2015SMT00055

PATIENT
  Age: 91 Year
  Sex: Female
  Weight: 63.49 kg

DRUGS (4)
  1. COLLAGENASE SANTYL [Suspect]
     Active Substance: COLLAGENASE CLOSTRIDIUM HISTOLYTICUM
     Indication: WOUND
     Dosage: 1 DOSAGE UNITS, EVERY 48 HOURS
     Route: 061
     Dates: start: 20150414
  2. CAPTOPRIL. [Concomitant]
     Active Substance: CAPTOPRIL
     Dosage: 20 MG, 2X/DAY
  3. BABY ASPIRIN [Concomitant]
     Active Substance: ASPIRIN
     Dosage: UNK, 1X/DAY
  4. HYDROCHLOROTHIAZIDE. [Concomitant]
     Active Substance: HYDROCHLOROTHIAZIDE
     Dosage: 15 MG, EVERY 48 HOURS

REACTIONS (4)
  - Application site erythema [Not Recovered/Not Resolved]
  - Application site pain [Not Recovered/Not Resolved]
  - Application site exfoliation [Not Recovered/Not Resolved]
  - Wound complication [Not Recovered/Not Resolved]

NARRATIVE: CASE EVENT DATE: 201504
